FAERS Safety Report 6136814-X (Version None)
Quarter: 2009Q1

REPORT INFORMATION
  Report Type: 
  Country: None (occurrence: None)
  Receive Date: 20090330
  Receipt Date: 20081119
  Transmission Date: 20090719
  Serious: No
  Sender: FDA-Public Use
  Company Number: US-BAYER-200839083NA

PATIENT
  Age: 53 Year
  Sex: Female

DRUGS (2)
  1. MAGNEVIST [Suspect]
     Indication: ANGIOGRAM
     Route: 042
     Dates: start: 20081114, end: 20081114
  2. MAGNEVIST [Suspect]
     Dosage: TOTAL DAILY DOSE: 20 ML  UNIT DOSE: 20 ML
     Route: 042
     Dates: start: 20081117, end: 20081117

REACTIONS (2)
  - PRURITUS [None]
  - RASH MACULAR [None]
